FAERS Safety Report 4828157-9 (Version None)
Quarter: 2005Q4

REPORT INFORMATION
  Report Type: 
  Country: None (occurrence: None)
  Receive Date: 20051115
  Receipt Date: 20050328
  Transmission Date: 20060501
  Serious: Yes (Death)
  Sender: FDA-Public Use
  Company Number: US-GLAXOSMITHKLINE-A0551814A

PATIENT
  Age: 14 Year
  Sex: Male

DRUGS (2)
  1. PAXIL [Suspect]
     Indication: DEPRESSION
     Dosage: 50MG PER DAY
     Route: 048
     Dates: start: 19980924
  2. CYLERT [Suspect]
     Dosage: 37.5MG PER DAY
     Route: 048

REACTIONS (7)
  - COMPLETED SUICIDE [None]
  - CRYING [None]
  - DRUG INEFFECTIVE [None]
  - EMOTIONAL DISORDER [None]
  - GUN SHOT WOUND [None]
  - LOSS OF CONSCIOUSNESS [None]
  - PANIC ATTACK [None]
